FAERS Safety Report 6956646-X (Version None)
Quarter: 2010Q3

REPORT INFORMATION
  Report Type: 
  Country: None (occurrence: None)
  Receive Date: 20100830
  Receipt Date: 20100730
  Transmission Date: 20110219
  Serious: No
  Sender: FDA-Public Use
  Company Number: US-PFIZER INC-2010088636

PATIENT

DRUGS (2)
  1. TIKOSYN [Suspect]
     Dosage: UNK
  2. MACROBID [Interacting]
     Dosage: UNK

REACTIONS (2)
  - DRUG INTERACTION [None]
  - URINARY TRACT INFECTION [None]
